FAERS Safety Report 20702827 (Version 3)
Quarter: 2024Q4

REPORT INFORMATION
  Report Type: Report from Study
  Country: JP (occurrence: JP)
  Receive Date: 20220412
  Receipt Date: 20241212
  Transmission Date: 20250115
  Serious: Yes (Other)
  Sender: BRISTOL-MYERS SQUIBB COMPANY
  Company Number: JP-BRISTOL-MYERS SQUIBB COMPANY-2022-017784

PATIENT
  Age: 59 Year
  Sex: Male
  Weight: 62.7 kg

DRUGS (3)
  1. BREYANZI [Suspect]
     Active Substance: LISOCABTAGENE MARALEUCEL
     Indication: Diffuse large B-cell lymphoma
     Dosage: TYPE OF ADMINISTERED CELLS: CD4-POSITIVE LYMPHOCYTES, CD8-POSITIVE LYMPHOCYTES
     Route: 041
     Dates: start: 20220112, end: 20220112
  2. FLUDARABINE [Concomitant]
     Active Substance: FLUDARABINE PHOSPHATE
     Indication: Diffuse large B-cell lymphoma
     Dosage: TOTAL DOSE WAS 54MG/M^2
     Dates: start: 20220107
  3. CYCLOPHOSPHAMIDE [Concomitant]
     Active Substance: CYCLOPHOSPHAMIDE
     Indication: Diffuse large B-cell lymphoma
     Dosage: TOTAL DOSE WAS 900MG/M^2
     Dates: start: 20220107

REACTIONS (3)
  - Compression fracture [Unknown]
  - Cytokine release syndrome [Recovered/Resolved]
  - Hypogammaglobulinaemia [Not Recovered/Not Resolved]

NARRATIVE: CASE EVENT DATE: 20220115
